FAERS Safety Report 4556857-7 (Version None)
Quarter: 2005Q1

REPORT INFORMATION
  Report Type: 
  Country: None (occurrence: None)
  Receive Date: 20050119
  Receipt Date: 20050119
  Transmission Date: 20050727
  Serious: Yes (Life-Threatening, Hospitalization)
  Sender: FDA-Public Use
  Company Number: None

PATIENT
  Sex: Female

DRUGS (1)
  1. PHOSPHATIDYLCHOLINE  PHOSPHATIDYLCHOLINE W/ 5% DW [Suspect]

REACTIONS (14)
  - ABDOMINAL PAIN [None]
  - BRADYCARDIA [None]
  - BURNING SENSATION [None]
  - CHROMATURIA [None]
  - HAEMATURIA [None]
  - HYPOACUSIS [None]
  - INJECTION SITE IRRITATION [None]
  - INJECTION SITE PAIN [None]
  - NAUSEA [None]
  - RENAL FAILURE [None]
  - RENAL IMPAIRMENT [None]
  - SKIN DISCOLOURATION [None]
  - VISION BLURRED [None]
  - VOMITING [None]
